FAERS Safety Report 7787619-5 (Version None)
Quarter: 2011Q3

REPORT INFORMATION
  Report Type: 
  Country: None (occurrence: None)
  Receive Date: 20110929
  Receipt Date: 20101014
  Transmission Date: 20111222
  Serious: Yes (Hospitalization)
  Sender: FDA-Public Use
  Company Number: US-BAYER-201033828NA

PATIENT
  Age: 42 Year
  Sex: Female
  Weight: 93.878 kg

DRUGS (12)
  1. YASMIN [Suspect]
     Dosage: UNK
     Route: 048
     Dates: start: 20080701, end: 20080801
  2. STANDARD PROCESS BRAND [Concomitant]
     Indication: MEDICAL DIET
     Dosage: EVERYDAY
     Dates: start: 20040101
  3. ATIVAN [Concomitant]
  4. LORAZEPAM [Concomitant]
  5. CELEXA [Concomitant]
  6. POTASSIUM CHLORIDE [Concomitant]
     Dosage: ONE DOSE IN THE ER
     Dates: start: 20080501
  7. COPAXONE [Concomitant]
     Dosage: DAILY
  8. STEROIDS [Concomitant]
     Indication: MULTIPLE SCLEROSIS
     Dosage: 3 DAYS
     Route: 042
     Dates: start: 20080401, end: 20080601
  9. LOESTRIN FE 1/20 [Concomitant]
  10. ZOLPIDEM [Concomitant]
  11. CITALOPRAM HYDROBROMIDE [Concomitant]
  12. PREDNISONE [Concomitant]

REACTIONS (3)
  - DEPRESSION [None]
  - ABDOMINAL PAIN UPPER [None]
  - CHOLECYSTITIS CHRONIC [None]
